FAERS Safety Report 12000997 (Version 1)
Quarter: 2016Q1

REPORT INFORMATION
  Report Type: Spontaneous
  Country: US (occurrence: US)
  Receive Date: 20160204
  Receipt Date: 20160204
  Transmission Date: 20160526
  Serious: No
  Sender: FDA-Public Use
  Company Number: US-GLAXOSMITHKLINE-US2016010535

PATIENT
  Sex: Female

DRUGS (1)
  1. ZANTAC [Suspect]
     Active Substance: RANITIDINE HYDROCHLORIDE
     Indication: OESOPHAGEAL ACHALASIA
     Dosage: UNK (300 TO 450 MG) ZANTAC TABLETS A DAY FOR YEARS

REACTIONS (3)
  - Overdose [Unknown]
  - Off label use [Unknown]
  - Inability to afford medication [Unknown]
